FAERS Safety Report 9223167 (Version 1)
Quarter: 2013Q1

REPORT INFORMATION
  Report Type: Spontaneous
  Country: US (occurrence: None)
  Receive Date: 20120914
  Receipt Date: 20120914
  Transmission Date: 20140127
  Serious: Yes (Other)
  Sender: FDA-Public Use
  Company Number: JPI-P-016819

PATIENT
  Age: 55 Year
  Sex: Female
  Weight: 81.65 kg

DRUGS (3)
  1. XYREM (500 MILLIGRAM/MILLILITERS, SOLUTION) (SODIUM OXYBATE) [Suspect]
     Indication: INSOMNIA
     Route: 048
     Dates: start: 20110805, end: 201108
  2. XYREM (500 MILLIGRAM/MILLILITERS, SOLUTION) (SODIUM OXYBATE) [Suspect]
     Indication: FIBROMYALGIA
     Route: 048
     Dates: start: 20110805, end: 201108
  3. ESTRADIOL [Concomitant]

REACTIONS (4)
  - Blood pressure increased [None]
  - Vomiting [None]
  - Nausea [None]
  - Gastrointestinal disorder [None]
